FAERS Safety Report 7331787-6 (Version None)
Quarter: 2011Q1

REPORT INFORMATION
  Report Type: 
  Country: None (occurrence: None)
  Receive Date: 20110304
  Receipt Date: 20091123
  Transmission Date: 20110831
  Serious: Yes (Hospitalization, Other)
  Sender: FDA-Public Use
  Company Number: US-PFIZER INC-2008069845

PATIENT
  Sex: Male

DRUGS (8)
  1. VASOTEC [Concomitant]
  2. LANOXIN [Concomitant]
  3. DILANTIN [Suspect]
     Indication: ARRHYTHMIA
     Dosage: 100 MG, 2X/DAY
     Route: 048
     Dates: start: 20060915, end: 20061012
  4. DILANTIN [Suspect]
     Dosage: 50 MG, UNK
     Route: 048
     Dates: start: 20060101
  5. ASPIRIN [Concomitant]
  6. LASIX [Concomitant]
  7. ALDACTONE [Concomitant]
  8. COREG [Concomitant]

REACTIONS (1)
  - STEVENS-JOHNSON SYNDROME [None]
